FAERS Safety Report 14665141 (Version 1)
Quarter: 2018Q1

REPORT INFORMATION
  Report Type: Spontaneous
  Country: US (occurrence: US)
  Receive Date: 20180320
  Receipt Date: 20180320
  Transmission Date: 20180509
  Serious: Yes (Hospitalization)
  Sender: FDA-Public Use
  Company Number: None

PATIENT
  Age: 68 Year
  Sex: Male
  Weight: 90.9 kg

DRUGS (12)
  1. ATORVASTATIN [Concomitant]
     Active Substance: ATORVASTATIN
     Dates: start: 20170608
  2. LOMOTIL [Concomitant]
     Active Substance: ATROPINE SULFATE\DIPHENOXYLATE HYDROCHLORIDE
     Dates: start: 20180318
  3. TAMSULOSIN [Concomitant]
     Active Substance: TAMSULOSIN
     Dates: start: 20170608
  4. IRINOTECAN [Suspect]
     Active Substance: IRINOTECAN
     Indication: NON-SMALL CELL LUNG CANCER METASTATIC
     Dosage: ?          OTHER FREQUENCY:DAYS 1,8,15;?
     Route: 041
     Dates: start: 20180129, end: 20180312
  5. XARELTO [Concomitant]
     Active Substance: RIVAROXABAN
     Dates: start: 20171030
  6. OXYCODONE [Concomitant]
     Active Substance: OXYCODONE
     Dates: start: 20170610
  7. CARFILZOMIB [Suspect]
     Active Substance: CARFILZOMIB
     Indication: NON-SMALL CELL LUNG CANCER METASTATIC
     Dosage: ?          OTHER FREQUENCY:DAYS 1,2,8,9,15,16;?
     Route: 041
     Dates: start: 20180129, end: 20180313
  8. MEGESTROL [Concomitant]
     Active Substance: MEGESTROL
     Dates: start: 20180129
  9. ALBUTEROL. [Concomitant]
     Active Substance: ALBUTEROL
     Dates: start: 20170608
  10. METROPROLOL SUCCINATE [Concomitant]
     Dates: start: 20170608
  11. ZANAFLEX [Concomitant]
     Active Substance: TIZANIDINE HYDROCHLORIDE
     Dates: start: 20170608
  12. FAMOTIDINE. [Concomitant]
     Active Substance: FAMOTIDINE
     Dates: start: 20170828

REACTIONS (4)
  - Neutropenia [None]
  - Encephalopathy [None]
  - Diarrhoea [None]
  - Asthenia [None]

NARRATIVE: CASE EVENT DATE: 20180318
